FAERS Safety Report 4624761-1 (Version None)
Quarter: 2005Q1

REPORT INFORMATION
  Report Type: 
  Country: None (occurrence: None)
  Receive Date: 20050107
  Receipt Date: 20041202
  Transmission Date: 20050727
  Serious: No
  Sender: FDA-Public Use
  Company Number: 235853K04USA

PATIENT
  Age: 43 Year
  Sex: Female

DRUGS (1)
  1. REBIF [Suspect]
     Indication: MULTIPLE SCLEROSIS

REACTIONS (5)
  - DRUG ABUSER [None]
  - DRUG ADMINISTRATION ERROR [None]
  - INJECTION SITE INDURATION [None]
  - INJECTION SITE INFLAMMATION [None]
  - MYDRIASIS [None]
